FAERS Safety Report 8138762-2 (Version None)
Quarter: 2012Q1

REPORT INFORMATION
  Report Type: 
  Country: None (occurrence: None)
  Receive Date: 20120215
  Receipt Date: 20120208
  Transmission Date: 20120608
  Serious: Yes (Other)
  Sender: FDA-Public Use
  Company Number: AU-GLAXOSMITHKLINE-B0777191A

PATIENT
  Sex: Male

DRUGS (2)
  1. FLUTICASONE PROPIONATE [Suspect]
     Indication: SEASONAL ALLERGY
     Dosage: 4SPR SINGLE DOSE
     Route: 045
     Dates: start: 20110101, end: 20111224
  2. CRESTOR [Concomitant]
     Indication: BLOOD CHOLESTEROL
     Dosage: 10MG PER DAY

REACTIONS (3)
  - VISION BLURRED [None]
  - CATARACT [None]
  - EYE DISORDER [None]
